FAERS Safety Report 6282690-4 (Version None)
Quarter: 2009Q3

REPORT INFORMATION
  Report Type: 
  Country: None (occurrence: None)
  Receive Date: 20090724
  Receipt Date: 20090716
  Transmission Date: 20100115
  Serious: Yes (Hospitalization)
  Sender: FDA-Public Use
  Company Number: US-WATSON-2009-05590

PATIENT
  Sex: Female
  Weight: 68.027 kg

DRUGS (11)
  1. FENTANYL-100 [Suspect]
     Indication: BACK PAIN
     Dosage: 1 PATCH, Q 3 DAYS
     Route: 062
     Dates: start: 20090529
  2. FENTANYL-75 [Suspect]
     Indication: BACK PAIN
     Dosage: 1 PATCH, Q 3 DAYS
     Route: 062
     Dates: start: 20090526, end: 20090528
  3. FENTANYL-75 [Suspect]
     Dosage: 1 PATCH, Q 3 DAYS
     Route: 062
     Dates: start: 20090401, end: 20090525
  4. FENTANYL-50 [Suspect]
     Indication: BACK PAIN
     Dosage: 1 PATCH, Q 3 DAYS
     Route: 062
     Dates: start: 20090301, end: 20090401
  5. HYDROCODONE BITARTRATE AND ACETAMINOPHEN [Suspect]
     Indication: BACK PAIN
     Dosage: 6 TABLET, DAILY
     Route: 048
     Dates: start: 20090501
  6. HYDROCODONE BITARTRATE AND ACETAMINOPHEN [Suspect]
     Dosage: 8 TABLET, DAILY (2 TABLETS Q 5-6 HOURS)
     Route: 048
     Dates: start: 20070101, end: 20090501
  7. DEMEROL [Suspect]
     Indication: PROCEDURAL PAIN
     Dosage: UNK
     Route: 065
     Dates: start: 20090526
  8. DILAUDID [Concomitant]
     Indication: PROCEDURAL PAIN
     Dosage: PUMP
     Route: 065
     Dates: start: 20090526
  9. LYRICA [Concomitant]
     Indication: FIBROMYALGIA
     Dosage: QHS
     Route: 048
  10. XANAX [Concomitant]
     Indication: ANXIETY
     Dosage: 0.5 MG, PRN
     Route: 065
  11. CARVEDILOL [Concomitant]
     Indication: ARRHYTHMIA
     Dosage: UNK
     Route: 048
     Dates: end: 20090501

REACTIONS (19)
  - ASTHENIA [None]
  - BACK PAIN [None]
  - CHILLS [None]
  - CONSTIPATION [None]
  - CYSTITIS [None]
  - DISORIENTATION [None]
  - DRUG INEFFECTIVE [None]
  - FEELING COLD [None]
  - FEELING HOT [None]
  - HEART RATE DECREASED [None]
  - HEART RATE INCREASED [None]
  - HYPERHIDROSIS [None]
  - HYPOTENSION [None]
  - INSOMNIA [None]
  - MALAISE [None]
  - NAUSEA [None]
  - NERVOUSNESS [None]
  - SPINAL COMPRESSION FRACTURE [None]
  - SPINAL CORD INFECTION [None]
